FAERS Safety Report 6220887-X (Version None)
Quarter: 2009Q2

REPORT INFORMATION
  Report Type: 
  Country: None (occurrence: None)
  Receive Date: 20090610
  Receipt Date: 20090602
  Transmission Date: 20091009
  Serious: Yes (Life-Threatening)
  Sender: FDA-Public Use
  Company Number: JP-PFIZER INC-2009223140

PATIENT

DRUGS (1)
  1. SULPERAZON [Suspect]
     Indication: PNEUMONIA
     Dosage: 1 G, UNK
     Route: 042
     Dates: start: 20090602, end: 20090602

REACTIONS (1)
  - ANAPHYLACTIC SHOCK [None]
